FAERS Safety Report 19816862 (Version 1)
Quarter: 2021Q3

REPORT INFORMATION
  Report Type: Spontaneous
  Country: US (occurrence: US)
  Receive Date: 20210910
  Receipt Date: 20210910
  Transmission Date: 20211014
  Serious: Yes (Disabling)
  Sender: FDA-Public Use
  Company Number: US-TEVA-2021-US-1952178

PATIENT
  Age: 76 Year
  Sex: Female
  Weight: 68 kg

DRUGS (22)
  1. EMLA [Concomitant]
     Active Substance: LIDOCAINE\PRILOCAINE
     Dosage: 2.5?2.5%, PLACE OVER PORT SITE AND COVER 1 HOUR PRIOR TO PORT ACCESS
     Dates: start: 20140226
  2. DOCETAXEL WINTHROP [Suspect]
     Active Substance: DOCETAXEL
     Dosage: DOSAGE: 75MG/M2
     Route: 042
     Dates: start: 20140303, end: 20140505
  3. TENORMIN [Concomitant]
     Active Substance: ATENOLOL
     Dosage: BY MOUTH EVERY DAY
     Route: 048
  4. GLUCOTROL [Concomitant]
     Active Substance: GLIPIZIDE
     Dosage: BY MOUTH 2 TIMES A DAY
     Route: 048
  5. ZOCOR [Concomitant]
     Active Substance: SIMVASTATIN
     Dosage: BY MOUTH EVERY EVENING
     Route: 048
  6. DECADRON [Concomitant]
     Active Substance: DEXAMETHASONE
     Dosage: 4MG/ML
     Route: 042
     Dates: end: 20140703
  7. TIMOPTIC [Concomitant]
     Active Substance: TIMOLOL MALEATE
     Dosage: 0.25%, PLACE 1 DROP IN BOTH EYES 2 TIMES A DAY. ? BOTH EYES
  8. VITAMIN D3 [Concomitant]
     Active Substance: CHOLECALCIFEROL
     Dosage: 1000 UNIT BY MOUTH EVERY DAY
     Route: 048
  9. GLUCOPHAGE [Concomitant]
     Active Substance: METFORMIN HYDROCHLORIDE
     Dosage: BY MOUTH 2 TIMES A DAY, WITH MEALS
     Route: 048
  10. CYTOXAN [Concomitant]
     Active Substance: CYCLOPHOSPHAMIDE
     Indication: BREAST CANCER STAGE II
     Dosage: DOSAGE: 600MG/M2
     Route: 042
     Dates: start: 20140303, end: 20140505
  11. DECADRON [Concomitant]
     Active Substance: DEXAMETHASONE
     Dosage: TAKE BID DAY BEFORE. THE DAY AFTER AND TWO DAYS AFTER CHEMOTHERAPY TREATMENT
     Route: 048
     Dates: start: 20140226, end: 20140703
  12. COMPAZINE [Concomitant]
     Active Substance: PROCHLORPERAZINE MALEATE
     Dosage: TAKE 1 TAB BY MOUTH EVERV 6 HOURS AS NEEDED
     Route: 048
     Dates: start: 20140226, end: 20140703
  13. ZOFRAN [Concomitant]
     Active Substance: ONDANSETRON HYDROCHLORIDE
     Indication: NAUSEA
     Dosage: TAKE 1 TAB BY MOUTH EVERY FOUR HOURS AS NEEDED
     Route: 048
     Dates: start: 20140226, end: 20140703
  14. ASA [Concomitant]
     Active Substance: ASPIRIN
     Dosage: BY MOUTH EVERY DAY
     Route: 048
  15. ELAVIL [Concomitant]
     Active Substance: AMITRIPTYLINE HYDROCHLORIDE
     Dosage: BY MOUTH EVERY EVENING
     Route: 048
  16. DOCETAXEL ACCORD [Suspect]
     Active Substance: DOCETAXEL
     Indication: BREAST CANCER STAGE II
     Dosage: DOSAGE: 75MG/M2
     Route: 042
     Dates: start: 20140303, end: 20140505
  17. COZAAR [Concomitant]
     Active Substance: LOSARTAN POTASSIUM
     Dosage: BY MOUTH EVERY DAY
     Route: 048
  18. DOCETAXEL WINTHROP [Suspect]
     Active Substance: DOCETAXEL
     Indication: BREAST CANCER STAGE II
     Dosage: DOSAGE: 75MG/M2
     Route: 042
     Dates: start: 20140303, end: 20140505
  19. BENADRYL [Concomitant]
     Active Substance: DIPHENHYDRAMINE HYDROCHLORIDE
     Dosage: 50 MG/ML, ONE TIME
     Route: 042
     Dates: end: 20140703
  20. ZOFRAN [Concomitant]
     Active Substance: ONDANSETRON HYDROCHLORIDE
     Indication: VOMITING
     Dosage: 2MG/ML
     Route: 042
     Dates: end: 20140703
  21. ARMOUR THYROID [Concomitant]
     Active Substance: THYROID, PORCINE
     Indication: THYROID DISORDER
     Dosage: TAKE 60 MG BY MOUTH EVERY DAY
     Route: 048
  22. DOCETAXEL SAGENT [Suspect]
     Active Substance: DOCETAXEL
     Indication: BREAST CANCER STAGE II
     Dosage: DOSAGE: 75MG/M2
     Route: 042
     Dates: start: 20140303, end: 20140505

REACTIONS (10)
  - Alopecia areata [Not Recovered/Not Resolved]
  - Pain [Unknown]
  - Injection site pain [Unknown]
  - Hair texture abnormal [Not Recovered/Not Resolved]
  - Pain in jaw [Unknown]
  - Madarosis [Not Recovered/Not Resolved]
  - Hair colour changes [Not Recovered/Not Resolved]
  - Dysuria [Unknown]
  - Alopecia totalis [Not Recovered/Not Resolved]
  - Fatigue [Recovering/Resolving]

NARRATIVE: CASE EVENT DATE: 201403
